FAERS Safety Report 9129301 (Version 1)
Quarter: 2013Q1

REPORT INFORMATION
  Report Type: Spontaneous
  Country: DE (occurrence: DE)
  Receive Date: 20130228
  Receipt Date: 20130228
  Transmission Date: 20140127
  Serious: Yes (Hospitalization, Other)
  Sender: FDA-Public Use
  Company Number: DE-ELI_LILLY_AND_COMPANY-DE201302008675

PATIENT
  Sex: Female

DRUGS (2)
  1. EFIENT [Suspect]
     Indication: ACUTE MYOCARDIAL INFARCTION
     Dosage: 10 MG, UNK
     Route: 048
  2. ASS [Concomitant]
     Dosage: UNK

REACTIONS (2)
  - Deep vein thrombosis [Unknown]
  - Menorrhagia [Unknown]
